FAERS Safety Report 7035489-5 (Version None)
Quarter: 2010Q4

REPORT INFORMATION
  Report Type: 
  Country: None (occurrence: None)
  Receive Date: 20101008
  Receipt Date: 20100929
  Transmission Date: 20110411
  Serious: Yes (Hospitalization, Disabling, Other)
  Sender: FDA-Public Use
  Company Number: US-PFIZER INC-2010095340

PATIENT
  Sex: Male

DRUGS (21)
  1. CHANTIX [Suspect]
     Indication: SMOKING CESSATION THERAPY
     Dosage: STARTING PACK AND CONTINUING MONTH PACK
     Dates: start: 20071001, end: 20090101
  2. ALLOPURINOL [Concomitant]
     Indication: HYPERTENSION
     Dosage: UNK
     Dates: start: 20020101
  3. AMITRIPTYLINE [Concomitant]
     Indication: INSOMNIA
     Dosage: UNK
     Dates: start: 20020101, end: 20080101
  4. CLARITIN-D [Concomitant]
     Indication: HYPERSENSITIVITY
     Dosage: UNK
     Dates: start: 20020101, end: 20090101
  5. ZOMIG [Concomitant]
     Indication: MIGRAINE
     Dosage: UNK
     Dates: start: 20020101, end: 20090101
  6. INDERAL LA [Concomitant]
     Indication: MIGRAINE
     Dosage: UNK
     Dates: start: 20020101
  7. HYDROCORTISONE [Concomitant]
     Indication: INFLAMMATION
     Dosage: UNK
     Dates: start: 20020101, end: 20080101
  8. AMOXICILLIN [Concomitant]
     Indication: ANTIBIOTIC THERAPY
     Dosage: UNK
     Dates: start: 20020101, end: 20080101
  9. CLOTRIMAZOLE [Concomitant]
     Indication: FUNGAL SKIN INFECTION
     Dosage: UNK
     Dates: start: 20030101, end: 20080101
  10. HYDROCODONE [Concomitant]
     Indication: PAIN
     Dosage: UNK
     Dates: start: 20020101, end: 20090101
  11. IBUPROFEN [Concomitant]
     Indication: PAIN
     Dosage: UNK
     Dates: start: 20020101, end: 20090101
  12. IBUPROFEN [Concomitant]
     Indication: ARTHRITIS
  13. CYCLOBENZAPRINE [Concomitant]
     Indication: MUSCLE RELAXANT THERAPY
     Dosage: UNK
     Dates: start: 20050101, end: 20090101
  14. FLEXERIL [Concomitant]
     Indication: MUSCLE RELAXANT THERAPY
     Dosage: UNK
     Dates: start: 20050101
  15. METHADONE [Concomitant]
     Indication: PAIN
     Dosage: UNK
     Dates: start: 20050101, end: 20090101
  16. LIDODERM [Concomitant]
     Indication: PAIN
     Dosage: UNK
     Dates: start: 20050101, end: 20090101
  17. ALPRAZOLAM [Concomitant]
     Indication: ANXIETY
     Dosage: UNK
     Dates: start: 20060101, end: 20100101
  18. LYRICA [Concomitant]
     Indication: FIBROMYALGIA
     Dosage: UNK
     Dates: start: 20060101, end: 20090101
  19. CEPHALEXIN [Concomitant]
     Indication: ANTIBIOTIC THERAPY
     Dosage: UNK
     Dates: start: 20060101, end: 20080101
  20. DEMEROL [Concomitant]
     Indication: PAIN
     Dosage: UNK
     Dates: start: 20020101, end: 20100101
  21. ADVIL LIQUI-GELS [Concomitant]
     Indication: PAIN
     Dosage: UNK
     Dates: start: 20040101, end: 20090101

REACTIONS (20)
  - AGGRESSION [None]
  - AMNESIA [None]
  - AMPUTATION STUMP PAIN [None]
  - ANXIETY [None]
  - CARDIAC ARREST [None]
  - DEPRESSION [None]
  - HALLUCINATION, AUDITORY [None]
  - HALLUCINATION, VISUAL [None]
  - HYPOTHERMIA [None]
  - INFECTION [None]
  - INSOMNIA [None]
  - INTENTIONAL OVERDOSE [None]
  - INTENTIONAL SELF-INJURY [None]
  - LEG AMPUTATION [None]
  - LOSS OF CONSCIOUSNESS [None]
  - MOOD SWINGS [None]
  - PARANOIA [None]
  - PHANTOM PAIN [None]
  - POOR PERIPHERAL CIRCULATION [None]
  - SUICIDE ATTEMPT [None]
